FAERS Safety Report 6394643-6 (Version None)
Quarter: 2009Q4

REPORT INFORMATION
  Report Type: 
  Country: None (occurrence: None)
  Receive Date: 20091009
  Receipt Date: 20091001
  Transmission Date: 20100525
  Serious: No
  Sender: FDA-Public Use
  Company Number: US-B.I. PHARMACEUTICALS,INC./RIDGEFIELD-2009-BP-05532BP

PATIENT
  Sex: Female

DRUGS (10)
  1. CATAPRES-TTS-1 [Suspect]
     Indication: HYPERTENSION
     Dosage: 0.1 MG
     Route: 061
     Dates: start: 20070901, end: 20090301
  2. CATAPRES-TTS-1 [Suspect]
     Dosage: 0.1 MG
     Route: 061
     Dates: start: 20090701
  3. NORVASC [Concomitant]
     Indication: HYPERTENSION
     Dates: start: 19990101
  4. AGGRENOX [Concomitant]
     Indication: ANTICOAGULANT THERAPY
     Dates: start: 20070901
  5. AGGRENOX [Concomitant]
     Indication: ANTIPLATELET THERAPY
  6. PROTONIX [Concomitant]
     Indication: ABDOMINAL DISCOMFORT
     Dates: start: 19990101
  7. PROTONIX [Concomitant]
     Indication: DYSPEPSIA
  8. LIPITOR [Concomitant]
     Indication: BLOOD CHOLESTEROL INCREASED
  9. VITAMIN D [Concomitant]
     Indication: VITAMIN SUPPLEMENTATION
  10. D-CAL [Concomitant]

REACTIONS (3)
  - PRURITUS [None]
  - SKIN BURNING SENSATION [None]
  - SKIN IRRITATION [None]
